FAERS Safety Report 5707036-9 (Version None)
Quarter: 2008Q2

REPORT INFORMATION
  Report Type: 
  Country: None (occurrence: None)
  Receive Date: 20080416
  Receipt Date: 20080411
  Transmission Date: 20081010
  Serious: Yes (Other)
  Sender: FDA-Public Use
  Company Number: B0477640A

PATIENT
  Age: 27 Year
  Sex: Female
  Weight: 46 kg

DRUGS (1)
  1. ZENTEL [Suspect]
     Indication: DRUG USE FOR UNKNOWN INDICATION
     Dosage: 2TAB SINGLE DOSE
     Route: 048
     Dates: start: 20070610, end: 20070610

REACTIONS (1)
  - ABORTION INDUCED [None]
